FAERS Safety Report 16168557 (Version 2)
Quarter: 2019Q2

REPORT INFORMATION
  Report Type: Report from Study
  Country: US (occurrence: US)
  Receive Date: 20190408
  Receipt Date: 20190416
  Transmission Date: 20190711
  Serious: Yes (Hospitalization)
  Sender: FDA-Public Use
  Company Number: US-TESAROUBC-2019-TSO01447-US

PATIENT
  Age: 64 Year
  Sex: Female

DRUGS (4)
  1. NIRAPARIB [Suspect]
     Active Substance: NIRAPARIB
     Dosage: DOSE REDUCTION
     Route: 048
     Dates: start: 20190325, end: 20190325
  2. NIRAPARIB [Suspect]
     Active Substance: NIRAPARIB
     Indication: NEOPLASM
     Dosage: 300 MG, UNK
     Route: 048
     Dates: start: 20190128, end: 20190128
  3. NIRAPARIB [Suspect]
     Active Substance: NIRAPARIB
     Dosage: 200 MG, UNK
     Route: 048
     Dates: start: 20190331, end: 20190331
  4. SYNTHROID [Concomitant]
     Active Substance: LEVOTHYROXINE SODIUM
     Indication: HYPOTHYROIDISM
     Dosage: 150 ?G, QD
     Route: 048
     Dates: start: 20190311

REACTIONS (1)
  - Acute kidney injury [Recovered/Resolved]

NARRATIVE: CASE EVENT DATE: 20190401
